FAERS Safety Report 5725570-2 (Version None)
Quarter: 2008Q2

REPORT INFORMATION
  Report Type: 
  Country: None (occurrence: None)
  Receive Date: 20080501
  Receipt Date: 20080421
  Transmission Date: 20081010
  Serious: Yes (Hospitalization, Other)
  Sender: FDA-Public Use
  Company Number: CA-ELI_LILLY_AND_COMPANY-CA200804005499

PATIENT
  Sex: Female

DRUGS (7)
  1. FORTEO [Suspect]
     Indication: OSTEOPOROSIS
     Dates: start: 20070112, end: 20071209
  2. ASPIRIN [Concomitant]
  3. METHOTREXATE [Concomitant]
  4. LOSEC I.V. [Concomitant]
  5. PREDNISONE [Concomitant]
  6. RYTHMOL [Concomitant]
  7. DIGITALIS TAB [Concomitant]

REACTIONS (2)
  - FALL [None]
  - HEAD INJURY [None]
